FAERS Safety Report 25231324 (Version 1)
Quarter: 2025Q2

REPORT INFORMATION
  Report Type: Report from Study
  Country: QA (occurrence: QA)
  Receive Date: 20250423
  Receipt Date: 20250423
  Transmission Date: 20250716
  Serious: Yes (Other)
  Sender: ROCHE
  Company Number: QA-ROCHE-10000260832

PATIENT

DRUGS (1)
  1. ALECTINIB [Suspect]
     Active Substance: ALECTINIB
     Indication: Non-small cell lung cancer metastatic
     Route: 065

REACTIONS (8)
  - Pyrexia [Unknown]
  - Dyspnoea [Unknown]
  - Peripheral swelling [Unknown]
  - Cough [Unknown]
  - Transaminases increased [Unknown]
  - Blood creatinine increased [Unknown]
  - Pneumonitis [Unknown]
  - Pleural effusion [Unknown]
